FAERS Safety Report 22384165 (Version 5)
Quarter: 2025Q2

REPORT INFORMATION
  Report Type: Spontaneous
  Country: US (occurrence: US)
  Receive Date: 20230530
  Receipt Date: 20250502
  Transmission Date: 20250716
  Serious: No
  Sender: PFIZER
  Company Number: US-PFIZER INC-PV202300095138

PATIENT
  Age: 77 Year
  Sex: Female

DRUGS (19)
  1. XELJANZ XR [Suspect]
     Active Substance: TOFACITINIB CITRATE
  2. LEFLUNOMIDE [Concomitant]
     Active Substance: LEFLUNOMIDE
  3. GABAPENTIN [Concomitant]
     Active Substance: GABAPENTIN
  4. PREDNISONE [Concomitant]
     Active Substance: PREDNISONE
  5. FLUTICASONE PROPIONATE [Concomitant]
     Active Substance: FLUTICASONE PROPIONATE
  6. ERGOCALCIFEROL [Concomitant]
     Active Substance: ERGOCALCIFEROL
  7. IRBESARTAN [Concomitant]
     Active Substance: IRBESARTAN
  8. CHLORTHALIDONE [Concomitant]
     Active Substance: CHLORTHALIDONE
  9. TOLTERODINE TARTRATE [Concomitant]
     Active Substance: TOLTERODINE TARTRATE
  10. METRONIDAZOLE [Concomitant]
     Active Substance: METRONIDAZOLE
  11. AZITHROMYCIN [Concomitant]
     Active Substance: AZITHROMYCIN
  12. CETIRIZINE HCL [Concomitant]
     Active Substance: CETIRIZINE HYDROCHLORIDE
  13. MAGNESIUM [Concomitant]
     Active Substance: MAGNESIUM
  14. FAMOTIDINE [Concomitant]
     Active Substance: FAMOTIDINE
  15. METOPROLOL [Concomitant]
     Active Substance: METOPROLOL
  16. MONTELUKAST SODIUM [Concomitant]
     Active Substance: MONTELUKAST SODIUM
  17. ATORVASTATIN [Concomitant]
     Active Substance: ATORVASTATIN
  18. AMLODIPINE [Concomitant]
     Active Substance: AMLODIPINE BESYLATE
  19. IMIPRAMINE HYDROCHLORIDE [Concomitant]
     Active Substance: IMIPRAMINE HYDROCHLORIDE

REACTIONS (3)
  - Condition aggravated [Recovering/Resolving]
  - Cough [Recovering/Resolving]
  - Herpes zoster [Unknown]

NARRATIVE: CASE EVENT DATE: 20240101
